FAERS Safety Report 18104359 (Version 2)
Quarter: 2020Q3

REPORT INFORMATION
  Report Type: Spontaneous
  Country: US (occurrence: US)
  Receive Date: 20200803
  Receipt Date: 20200805
  Transmission Date: 20201103
  Serious: Yes (Hospitalization, Other)
  Sender: FDA-Public Use
  Company Number: US-JNJFOC-20200737825

PATIENT
  Age: 60 Year
  Sex: Male

DRUGS (1)
  1. INVOKANA [Suspect]
     Active Substance: CANAGLIFLOZIN
     Indication: TYPE 2 DIABETES MELLITUS
     Dosage: 100 MG ONCE A DAY FOR ONE MONTH AND THEN INCREASED DOSE TO 300 MG DAILY
     Route: 048

REACTIONS (6)
  - Cellulitis gangrenous [Unknown]
  - Osteomyelitis chronic [Not Recovered/Not Resolved]
  - Diabetic foot infection [Not Recovered/Not Resolved]
  - Wound dehiscence [Unknown]
  - Foot amputation [Unknown]
  - Toe amputation [Unknown]

NARRATIVE: CASE EVENT DATE: 201508
